FAERS Safety Report 24755002 (Version 2)
Quarter: 2025Q1

REPORT INFORMATION
  Report Type: Report from Study
  Country: US (occurrence: US)
  Receive Date: 20241219
  Receipt Date: 20250122
  Transmission Date: 20250409
  Serious: Yes (Life-Threatening, Other)
  Sender: ALEXION PHARMACEUTICALS
  Company Number: US-AstraZeneca-CH-00769974A

PATIENT
  Age: 58 Year

DRUGS (1)
  1. ULTOMIRIS [Suspect]
     Active Substance: RAVULIZUMAB-CWVZ
     Indication: Myasthenia gravis

REACTIONS (4)
  - Pancreatic carcinoma stage IV [Not Recovered/Not Resolved]
  - Metastases to bone [Not Recovered/Not Resolved]
  - Walking aid user [Not Recovered/Not Resolved]
  - Bedridden [Not Recovered/Not Resolved]
